FAERS Safety Report 9645717 (Version 1)
Quarter: 2013Q4

REPORT INFORMATION
  Report Type: Spontaneous
  Country: US (occurrence: US)
  Receive Date: 20131025
  Receipt Date: 20131025
  Transmission Date: 20140711
  Serious: No
  Sender: FDA-Public Use
  Company Number: US-MYLANLABS-2013S1018409

PATIENT
  Sex: Female

DRUGS (2)
  1. RIZATRIPTAN BENZOATE TABLETS [Suspect]
     Indication: MIGRAINE
     Dosage: MAY REPEAT IN 2 HOURS IF NEEDED
     Route: 048
     Dates: start: 20130807, end: 20130807
  2. IMITREX [Concomitant]
     Indication: MIGRAINE

REACTIONS (2)
  - Drug ineffective [Recovered/Resolved]
  - Migraine [Recovered/Resolved]
